FAERS Safety Report 15841505 (Version 1)
Quarter: 2019Q1

REPORT INFORMATION
  Report Type: Report from Study
  Country: US (occurrence: US)
  Receive Date: 20190118
  Receipt Date: 20190118
  Transmission Date: 20190417
  Serious: Yes (Other)
  Sender: FDA-Public Use
  Company Number: US-ROCHE-2244695

PATIENT
  Age: 54 Year
  Sex: Female

DRUGS (2)
  1. OCREVUS [Suspect]
     Active Substance: OCRELIZUMAB
     Indication: PRIMARY PROGRESSIVE MULTIPLE SCLEROSIS
     Dosage: ONGOING:YES
     Route: 065
     Dates: start: 20180201
  2. OCREVUS [Suspect]
     Active Substance: OCRELIZUMAB
     Indication: GAIT SPASTIC
     Dosage: SECOND FULL INFUSION
     Route: 065
     Dates: start: 20180814

REACTIONS (2)
  - Multiple sclerosis relapse [Recovering/Resolving]
  - Viral infection [Not Recovered/Not Resolved]

NARRATIVE: CASE EVENT DATE: 201808
